FAERS Safety Report 19876967 (Version 1)
Quarter: 2021Q3

REPORT INFORMATION
  Report Type: Report from Study
  Country: ES (occurrence: ES)
  Receive Date: 20210924
  Receipt Date: 20210924
  Transmission Date: 20211014
  Serious: Yes (Hospitalization, Other)
  Sender: FDA-Public Use
  Company Number: ES-TEVA-2021-ES-1956693

PATIENT
  Age: 5 Year
  Sex: Female

DRUGS (2)
  1. LEVOTIROXINA (1842A) (LEVOTHYROXINE) [Suspect]
     Active Substance: LEVOTHYROXINE SODIUM
     Indication: ACCIDENTAL EXPOSURE TO PRODUCT
     Dosage: 5?YEAR?OLD GIRL ACCIDENTALLY SWALLOWS 5 LEVOTHYROXIN 200?MICROGRAM TABLETS, 200 MCG
     Route: 065
     Dates: start: 20210707, end: 20210707
  2. LEVOTIROXINA (1842A) (LEVOTHYROXINE) [Suspect]
     Active Substance: LEVOTHYROXINE SODIUM
     Indication: MEDICATION ERROR

REACTIONS (3)
  - Accidental exposure to product [Recovered/Resolved]
  - Hyperthyroidism [Recovered/Resolved]
  - Medication error [Recovered/Resolved]

NARRATIVE: CASE EVENT DATE: 20210707
